FAERS Safety Report 13053194 (Version 1)
Quarter: 2016Q4

REPORT INFORMATION
  Report Type: Spontaneous
  Country: SG (occurrence: US)
  Receive Date: 20161221
  Receipt Date: 20161221
  Transmission Date: 20170207
  Serious: Yes (Hospitalization)
  Sender: FDA-Public Use
  Company Number: None

PATIENT
  Age: 51 Year
  Sex: Female
  Weight: 65.8 kg

DRUGS (1)
  1. CISPLATIN. [Suspect]
     Active Substance: CISPLATIN
     Dates: end: 20161214

REACTIONS (4)
  - Leukopenia [None]
  - Mucosal inflammation [None]
  - Radiation skin injury [None]
  - Pyrexia [None]

NARRATIVE: CASE EVENT DATE: 20161218
